FAERS Safety Report 9472264 (Version 3)
Quarter: 2013Q3

REPORT INFORMATION
  Report Type: Report from Study
  Country: CA (occurrence: CA)
  Receive Date: 20130823
  Receipt Date: 20130905
  Transmission Date: 20140515
  Serious: Yes (Hospitalization)
  Sender: FDA-Public Use
  Company Number: CA-ROCHE-1180062

PATIENT
  Age: 58 Year
  Sex: Female
  Weight: 56 kg

DRUGS (12)
  1. ACTEMRA [Suspect]
     Indication: RHEUMATOID ARTHRITIS
     Route: 042
     Dates: start: 20120925
  2. ACTEMRA [Suspect]
     Route: 042
     Dates: start: 20130114
  3. ACTEMRA [Suspect]
     Route: 042
     Dates: start: 20130514
  4. ACTEMRA [Suspect]
     Route: 042
     Dates: start: 20130604
  5. ACTEMRA [Suspect]
     Route: 042
     Dates: start: 20130625
  6. METHOTREXATE [Concomitant]
     Dosage: WEEKLY
     Route: 058
  7. PREDNISONE [Concomitant]
  8. FOLIC ACID [Concomitant]
  9. VITAMIN C [Concomitant]
  10. FISH OIL [Concomitant]
  11. NEXIUM [Concomitant]
  12. BENEFIBER [Concomitant]

REACTIONS (5)
  - Stress cardiomyopathy [Unknown]
  - Weight increased [Not Recovered/Not Resolved]
  - Erythema [Not Recovered/Not Resolved]
  - Local swelling [Not Recovered/Not Resolved]
  - Rheumatoid arthritis [Unknown]
